FAERS Safety Report 7482311-9 (Version None)
Quarter: 2011Q2

REPORT INFORMATION
  Report Type: 
  Country: None (occurrence: None)
  Receive Date: 20110516
  Receipt Date: 20110511
  Transmission Date: 20111010
  Serious: Yes (Life-Threatening)
  Sender: FDA-Public Use
  Company Number: US-ASTRAZENECA-2011SE23769

PATIENT
  Age: 914 Month
  Sex: Female
  Weight: 93 kg

DRUGS (4)
  1. DOCETAXEL [Suspect]
     Indication: OVARIAN EPITHELIAL CANCER
     Route: 042
     Dates: start: 20100722
  2. DOCETAXEL [Suspect]
     Dosage: DOSE REDUCED (CYCLE 6)
     Route: 042
     Dates: start: 20101216, end: 20101216
  3. VANDETANIB [Suspect]
     Indication: OVARIAN EPITHELIAL CANCER
     Route: 048
     Dates: start: 20100722
  4. VANDETANIB [Suspect]
     Dosage: DOSE REDUCED (CYCLE 6)
     Route: 048
     Dates: start: 20101216, end: 20101228

REACTIONS (1)
  - NEUTROPHIL COUNT DECREASED [None]
